FAERS Safety Report 5619156-8 (Version None)
Quarter: 2008Q1

REPORT INFORMATION
  Report Type: 
  Country: None (occurrence: None)
  Receive Date: 20080205
  Receipt Date: 20080122
  Transmission Date: 20080703
  Serious: Yes (Other)
  Sender: FDA-Public Use
  Company Number: 2008SP002145

PATIENT
  Sex: Male

DRUGS (3)
  1. CORICIDIN [Suspect]
     Dosage: 1DF;HS;PO
     Route: 048
     Dates: start: 20080111
  2. CUMIDIN [Concomitant]
  3. BLOOD PRESSURE MEDICATION [Concomitant]

REACTIONS (5)
  - ANOREXIA [None]
  - DEPRESSION [None]
  - EPISTAXIS [None]
  - JOINT SWELLING [None]
  - THROMBOSIS [None]
